FAERS Safety Report 7532342-5 (Version None)
Quarter: 2011Q2

REPORT INFORMATION
  Report Type: 
  Country: None (occurrence: None)
  Receive Date: 20110601
  Receipt Date: 20110517
  Transmission Date: 20111010
  Serious: Yes (Hospitalization)
  Sender: FDA-Public Use
  Company Number: DKLU1062957

PATIENT
  Age: 22 Month
  Sex: Male

DRUGS (3)
  1. SABRIL [Suspect]
     Indication: COMPLEX PARTIAL SEIZURES
     Dosage: 500 MILLIGRAM(S), 2 IN 1 D, ORAL
     Route: 048
     Dates: start: 20090301, end: 20100601
  2. BENZODIAZEPINE (BENZODIAZEPINE DERIVATIVES) [Concomitant]
  3. FELBAMATE (FELBAMATE) [Concomitant]

REACTIONS (4)
  - PNEUMONIA [None]
  - RESPIRATORY SYNCYTIAL VIRUS INFECTION [None]
  - VISUAL FIELD DEFECT [None]
  - SEPSIS [None]
